FAERS Safety Report 18416267 (Version 5)
Quarter: 2021Q1

REPORT INFORMATION
  Report Type: Spontaneous
  Country: US (occurrence: US)
  Receive Date: 20201022
  Receipt Date: 20210311
  Transmission Date: 20210419
  Serious: No
  Sender: FDA-Public Use
  Company Number: US-THERATECHNOLOGIES INC.-2020-THE-TES-000230

PATIENT
  Age: 56 Year
  Sex: Female

DRUGS (2)
  1. EGRIFTA SV [Suspect]
     Active Substance: TESAMORELIN ACETATE
     Indication: HIV INFECTION
     Dosage: UNK
     Route: 058
     Dates: start: 20200925
  2. EGRIFTA SV [Suspect]
     Active Substance: TESAMORELIN ACETATE
     Dosage: 1.4 MG, QD
     Route: 058
     Dates: start: 20201110

REACTIONS (7)
  - Injection site pain [Unknown]
  - Blood glucose increased [Unknown]
  - Blood glucose abnormal [Not Recovered/Not Resolved]
  - Product preparation error [Unknown]
  - Nausea [Unknown]
  - Carpal tunnel syndrome [Not Recovered/Not Resolved]
  - Injection site rash [Unknown]

NARRATIVE: CASE EVENT DATE: 20200925
